FAERS Safety Report 8830027 (Version 5)
Quarter: 2013Q2

REPORT INFORMATION
  Report Type: Spontaneous
  Country: AU (occurrence: AU)
  Receive Date: 20121008
  Receipt Date: 20130510
  Transmission Date: 20140414
  Serious: Yes (Death, Hospitalization, Other)
  Sender: FDA-Public Use
  Company Number: PHHY2012AU087299

PATIENT
  Age: 55 Year
  Sex: Male

DRUGS (3)
  1. GILENYA [Suspect]
     Route: 048
     Dates: start: 20120614, end: 20120926
  2. EFFEXOR [Concomitant]
  3. SOMAC [Concomitant]

REACTIONS (19)
  - Metastatic squamous cell carcinoma [Fatal]
  - Metastases to bone [Fatal]
  - Bone lesion [Fatal]
  - Bone pain [Fatal]
  - Hypercalcaemia [Fatal]
  - Malaise [Fatal]
  - Confusional state [Fatal]
  - Pneumonia [Fatal]
  - Delirium [Recovering/Resolving]
  - Polydipsia [Unknown]
  - Renal impairment [Recovering/Resolving]
  - Dehydration [Recovering/Resolving]
  - Dry mouth [Unknown]
  - Nausea [Unknown]
  - Constipation [Unknown]
  - Anaemia [Unknown]
  - Lower respiratory tract infection [Unknown]
  - Gamma-glutamyltransferase increased [Unknown]
  - Alanine aminotransferase increased [Unknown]
